FAERS Safety Report 10662353 (Version 1)
Quarter: 2014Q4

REPORT INFORMATION
  Report Type: Spontaneous
  Country: GB (occurrence: GB)
  Receive Date: 20141218
  Receipt Date: 20141218
  Transmission Date: 20150529
  Serious: Yes (Other)
  Sender: FDA-Public Use
  Company Number: GB-SHIRE-GB201408820

PATIENT
  Age: 3 Decade
  Sex: Female

DRUGS (2)
  1. MIDON [Suspect]
     Active Substance: MIDODRINE
     Dosage: 5 MG, UNKNOWN
     Route: 048
  2. MIDON [Suspect]
     Active Substance: MIDODRINE
     Indication: PRODUCT USED FOR UNKNOWN INDICATION
     Dosage: 2.5 MG, UNKNOWN
     Route: 048

REACTIONS (2)
  - Intentional product misuse [Unknown]
  - Loss of consciousness [Unknown]
